FAERS Safety Report 4867229-X (Version None)
Quarter: 2005Q4

REPORT INFORMATION
  Report Type: 
  Country: None (occurrence: None)
  Receive Date: 20051222
  Receipt Date: 20051215
  Transmission Date: 20060501
  Serious: Yes (Other)
  Sender: FDA-Public Use
  Company Number: 2005S1000871

PATIENT
  Age: 1 Day
  Sex: Female
  Weight: 1.3 kg

DRUGS (2)
  1. INOMAX [Suspect]
     Indication: HYPOXIA
     Dosage: 20 PPM; CONT; INH
     Route: 055
     Dates: start: 20051214, end: 20051215
  2. INOMAX [Suspect]
     Indication: PULMONARY HYPERTENSION
     Dosage: 20 PPM; CONT; INH
     Route: 055
     Dates: start: 20051214, end: 20051215

REACTIONS (1)
  - WRONG DRUG ADMINISTERED [None]
